FAERS Safety Report 7755448-4 (Version None)
Quarter: 2011Q3

REPORT INFORMATION
  Report Type: 
  Country: None (occurrence: None)
  Receive Date: 20110916
  Receipt Date: 20110906
  Transmission Date: 20111222
  Serious: Yes (Hospitalization)
  Sender: FDA-Public Use
  Company Number: US-JNJFOC-20110902854

PATIENT
  Age: 17 Year
  Sex: Male
  Weight: 83.92 kg

DRUGS (3)
  1. INVEGA [Suspect]
     Indication: AFFECTIVE DISORDER
     Route: 048
     Dates: start: 20110830, end: 20110830
  2. INVEGA [Suspect]
     Route: 048
     Dates: start: 20110715, end: 20110725
  3. INVEGA [Suspect]
     Route: 048
     Dates: start: 20100101, end: 20110714

REACTIONS (11)
  - THERAPY CESSATION [None]
  - TONSILLAR DISORDER [None]
  - HALLUCINATION, AUDITORY [None]
  - SNORING [None]
  - ABNORMAL LOSS OF WEIGHT [None]
  - CATATONIA [None]
  - DRUG INEFFECTIVE [None]
  - SPEECH DISORDER [None]
  - LOGORRHOEA [None]
  - HALLUCINATION [None]
  - ADENOIDAL HYPERTROPHY [None]
